FAERS Safety Report 12195813 (Version 1)
Quarter: 2016Q1

REPORT INFORMATION
  Report Type: Spontaneous
  Country: US (occurrence: US)
  Receive Date: 20160321
  Receipt Date: 20160321
  Transmission Date: 20160526
  Serious: Yes (Other)
  Sender: FDA-Public Use
  Company Number: US-NOVOPROD-484229

PATIENT
  Age: 67 Year
  Sex: Male

DRUGS (1)
  1. NOVOLOG [Suspect]
     Active Substance: INSULIN ASPART
     Indication: BLOOD GLUCOSE INCREASED
     Dosage: SLIDING SCALE
     Route: 058
     Dates: start: 201408, end: 201504

REACTIONS (3)
  - Dialysis [Not Recovered/Not Resolved]
  - Off label use [Recovered/Resolved]
  - Weight decreased [Unknown]

NARRATIVE: CASE EVENT DATE: 201408
